FAERS Safety Report 22008691 (Version 2)
Quarter: 2023Q4

REPORT INFORMATION
  Report Type: Report from Study
  Country: US (occurrence: US)
  Receive Date: 20230219
  Receipt Date: 20231226
  Transmission Date: 20240109
  Serious: Yes (Hospitalization, Other)
  Sender: FDA-Public Use
  Company Number: US-BRISTOL-MYERS SQUIBB COMPANY-2023-022879

PATIENT
  Age: 47 Year
  Sex: Male
  Weight: 138.8 kg

DRUGS (4)
  1. ELIQUIS [Suspect]
     Active Substance: APIXABAN
     Indication: Deep vein thrombosis
     Route: 048
  2. COUMADIN [Concomitant]
     Active Substance: WARFARIN SODIUM
     Indication: Product used for unknown indication
  3. POTASSIUM CHLORIDE [Concomitant]
     Active Substance: POTASSIUM CHLORIDE
     Indication: Product used for unknown indication
  4. FUROSEMIDE [Concomitant]
     Active Substance: FUROSEMIDE
     Indication: Product used for unknown indication

REACTIONS (9)
  - Product quality issue [Unknown]
  - Haematoma [Unknown]
  - Muscle rupture [Unknown]
  - Eye disorder [Recovering/Resolving]
  - Thrombosis [Unknown]
  - Visual impairment [Unknown]
  - Treatment noncompliance [Unknown]
  - Haematochezia [Unknown]
  - Product supply issue [Unknown]

NARRATIVE: CASE EVENT DATE: 20231201
